FAERS Safety Report 4986084-0 (Version None)
Quarter: 2006Q2

REPORT INFORMATION
  Report Type: 
  Country: None (occurrence: None)
  Receive Date: 20060428
  Receipt Date: 20060421
  Transmission Date: 20061013
  Serious: Yes (Death)
  Sender: FDA-Public Use
  Company Number: US-JNJFOC-20060404961

PATIENT
  Age: 3 Month
  Sex: Female

DRUGS (2)
  1. CONCENTRATED INFANTS' TYLENOL COLD PLUS COUGH [Suspect]
  2. IMMUNIZATIONS [Concomitant]

REACTIONS (1)
  - DEATH [None]
